FAERS Safety Report 12231953 (Version 1)
Quarter: 2016Q2

REPORT INFORMATION
  Report Type: Spontaneous
  Country: US (occurrence: US)
  Receive Date: 20160401
  Receipt Date: 20160401
  Transmission Date: 20160815
  Serious: Yes (Life-Threatening, Hospitalization)
  Sender: FDA-Public Use
  Company Number: US-IMPAX LABORATORIES, INC-2016-IPXL-00340

PATIENT
  Age: 80 Year
  Sex: Male
  Weight: 88 kg

DRUGS (30)
  1. NORTHERA [Suspect]
     Active Substance: DROXIDOPA
     Dosage: 500 MG, 3 /DAY
     Route: 048
  2. MELATONIN [Concomitant]
     Active Substance: MELATONIN
     Indication: PRODUCT USED FOR UNKNOWN INDICATION
     Dosage: 5 MG, BEDTIME
     Route: 048
  3. LOPRESSOR [Concomitant]
     Active Substance: METOPROLOL TARTRATE
     Dosage: 12.5 MG, UNK AT 8 PM
     Route: 048
  4. FOSAMAX [Concomitant]
     Active Substance: ALENDRONATE SODIUM
     Indication: PRODUCT USED FOR UNKNOWN INDICATION
     Dosage: 70 MG, 1 /WEEK
     Route: 048
  5. PRAVACHOL [Concomitant]
     Active Substance: PRAVASTATIN SODIUM
     Indication: PRODUCT USED FOR UNKNOWN INDICATION
     Dosage: 40 MG, 1 /DAY
     Route: 048
  6. MIRALAX [Concomitant]
     Active Substance: POLYETHYLENE GLYCOL 3350
     Indication: PRODUCT USED FOR UNKNOWN INDICATION
     Dosage: EVERY OTHER DAY, PRN
     Route: 048
  7. MIDODRINE [Concomitant]
     Active Substance: MIDODRINE
     Indication: ORTHOSTATIC HYPOTENSION
     Dosage: 2.5 MG, IN NOON
     Route: 048
  8. RYTARY [Concomitant]
     Active Substance: CARBIDOPA\LEVODOPA
     Dosage: 23.75-95 MG, 3 DOSAGE FORMS AT 1700
     Route: 048
  9. BOTOX [Concomitant]
     Active Substance: ONABOTULINUMTOXINA
     Indication: SALIVARY HYPERSECRETION
     Dosage: UNK
     Route: 051
  10. XALATAN [Concomitant]
     Active Substance: LATANOPROST
     Indication: PRODUCT USED FOR UNKNOWN INDICATION
     Dosage: 1 DROP IN BOTH EYES
     Route: 047
  11. FLUDROCORTISONE ACETATE. [Suspect]
     Active Substance: FLUDROCORTISONE ACETATE
     Indication: ORTHOSTATIC HYPOTENSION
     Dosage: 0.1 MG, DAILY 7 AM
     Route: 048
  12. FORADIL [Concomitant]
     Active Substance: FORMOTEROL FUMARATE
     Indication: PRODUCT USED FOR UNKNOWN INDICATION
     Dosage: 12 ?G, 2 /DAY
     Route: 055
  13. LOPRESSOR [Concomitant]
     Active Substance: METOPROLOL TARTRATE
     Indication: PRODUCT USED FOR UNKNOWN INDICATION
     Dosage: 12.5 MG, UNK AT 8 AM
     Route: 048
  14. ACETAMINOPHEN. [Concomitant]
     Active Substance: ACETAMINOPHEN
     Indication: PRODUCT USED FOR UNKNOWN INDICATION
     Dosage: 500 MG, PRN, EVERY 6 HOURS
     Route: 048
  15. MULTIVITAMIN [Concomitant]
     Active Substance: VITAMINS
     Indication: PRODUCT USED FOR UNKNOWN INDICATION
     Dosage: UNK, 1 /DAY
     Route: 065
  16. COUMADINE [Concomitant]
     Active Substance: WARFARIN SODIUM
     Dosage: 6 MG, UNK
     Route: 048
  17. NORTHERA [Suspect]
     Active Substance: DROXIDOPA
     Dosage: 600 MG, 3 /DAY 7 AM
     Route: 048
     Dates: end: 20160221
  18. RYTARY [Concomitant]
     Active Substance: CARBIDOPA\LEVODOPA
     Dosage: 23.75-95 MG, 3 DOSAGE FORMS AT 1200
     Route: 048
  19. FLUDROCORTISONE ACETATE. [Suspect]
     Active Substance: FLUDROCORTISONE ACETATE
     Indication: PARKINSONISM
  20. COUMADINE [Concomitant]
     Active Substance: WARFARIN SODIUM
     Indication: PRODUCT USED FOR UNKNOWN INDICATION
     Dosage: 3 MG, UNK
     Route: 048
  21. RYTARY [Concomitant]
     Active Substance: CARBIDOPA\LEVODOPA
     Dosage: 23.75-95 MG, 3 DOSAGE FORMS AT 2200
     Route: 048
  22. TIKOSYN [Concomitant]
     Active Substance: DOFETILIDE
     Indication: PRODUCT USED FOR UNKNOWN INDICATION
     Dosage: 500 ?G, 2 /DAY
     Route: 048
  23. ATROPINE. [Concomitant]
     Active Substance: ATROPINE
     Indication: DROOLING
     Dosage: 1 DROP UPTP 4 DAY
     Route: 047
  24. NORTHERA [Suspect]
     Active Substance: DROXIDOPA
     Indication: ORTHOSTATIC HYPOTENSION
     Dosage: 100 MG, 3 /DAY
     Route: 048
     Dates: start: 20140923
  25. NITROGLYCERIN. [Concomitant]
     Active Substance: NITROGLYCERIN
     Indication: PRODUCT USED FOR UNKNOWN INDICATION
     Dosage: 0.4 MG, PRN IN EVERY 5 MIN
     Route: 060
  26. GENTEAL MILD [Concomitant]
     Active Substance: HYPROMELLOSE 2910 (4000 MPA.S)
     Indication: DRY EYE
     Dosage: 1-2 DROPS INTO BOTH EYES, PRN (8PM)
     Route: 047
  27. NORTHERA [Suspect]
     Active Substance: DROXIDOPA
     Dosage: 300 MG, 11 AM AND AT 4 PM IF BP IS BELOW THRESOLD
     Dates: end: 20160221
  28. MIDODRINE [Concomitant]
     Active Substance: MIDODRINE
     Dosage: 5 MG, IN MORNING
     Route: 048
  29. RYTARY [Concomitant]
     Active Substance: CARBIDOPA\LEVODOPA
     Indication: PRODUCT USED FOR UNKNOWN INDICATION
     Dosage: 23.75-95 MG, 3 DOSAGE FORMS AT 0700,
     Route: 048
  30. FINASTERIDE. [Concomitant]
     Active Substance: FINASTERIDE
     Indication: PRODUCT USED FOR UNKNOWN INDICATION
     Dosage: 5 MG, AT NOON
     Route: 048

REACTIONS (3)
  - Product use issue [Unknown]
  - Blood pressure increased [Recovered/Resolved]
  - Basal ganglia haemorrhage [Recovered/Resolved with Sequelae]

NARRATIVE: CASE EVENT DATE: 20160221
